FAERS Safety Report 8808936 (Version 3)
Quarter: 2012Q4

REPORT INFORMATION
  Report Type: 
  Country: JP (occurrence: JP)
  Receive Date: 20120926
  Receipt Date: 20121024
  Transmission Date: 20130627
  Serious: Yes (Other)
  Sender: FDA-Public Use
  Company Number: JP-ASTELLAS-2012JP008716

PATIENT
  Age: 17 Year
  Sex: Male

DRUGS (8)
  1. BETANIS [Suspect]
     Indication: POLLAKIURIA
     Dosage: 25 mg, UID/QD
     Route: 048
     Dates: start: 20120914, end: 20120917
  2. SEPAZON [Concomitant]
     Indication: ANXIETY
     Dosage: 2 mg, tid
     Route: 048
     Dates: start: 20120214
  3. LUVOX [Concomitant]
     Indication: OBSESSIVE-COMPULSIVE DISORDER
     Dosage: 25 mg, bid
     Route: 048
     Dates: start: 20120501
  4. GASMOTIN [Concomitant]
     Indication: PROPHYLAXIS
     Dosage: 5 mg, bid
     Route: 048
     Dates: start: 20120501
  5. XYZAL [Concomitant]
     Indication: RHINITIS ALLERGIC
     Dosage: 5 mg, bid
     Route: 048
     Dates: start: 20120214
  6. VESICARE [Concomitant]
     Indication: POLLAKIURIA
     Dosage: 5 mg, UID/QD
     Route: 048
     Dates: start: 20120220, end: 20120913
  7. DEPAS [Concomitant]
     Indication: ANXIETY
     Dosage: 1 mg, UID/QD
     Route: 048
     Dates: start: 20120501
  8. ASCOMARNA [Concomitant]
     Indication: INSOMNIA
     Dosage: 0.25 mg, prn
     Route: 048
     Dates: start: 201201

REACTIONS (2)
  - Intentional drug misuse [Unknown]
  - Mania [Not Recovered/Not Resolved]
